FAERS Safety Report 15289276 (Version 1)
Quarter: 2018Q3

REPORT INFORMATION
  Report Type: Spontaneous
  Country: US (occurrence: US)
  Receive Date: 20180803
  Receipt Date: 20180803
  Transmission Date: 20181010
  Serious: Yes (Other)
  Sender: FDA-Public Use
  Company Number: None

PATIENT
  Age: 59 Year
  Sex: Female
  Weight: 99 kg

DRUGS (5)
  1. YUVAFEM [Suspect]
     Active Substance: ESTRADIOL HEMIHYDRATE
     Indication: MENOPAUSE
     Dosage: ?          QUANTITY:1 TABLET(S);OTHER FREQUENCY:TWICE WEEKLY;?
     Route: 067
     Dates: start: 20180521, end: 20180803
  2. VITAMIN D [Concomitant]
     Active Substance: CHOLECALCIFEROL
  3. CINNAMON. [Concomitant]
     Active Substance: CINNAMON
  4. VITAMIN B12 [Concomitant]
     Active Substance: CYANOCOBALAMIN
  5. YUVAFEM [Suspect]
     Active Substance: ESTRADIOL HEMIHYDRATE
     Indication: ATROPHIC VULVOVAGINITIS
     Dosage: ?          QUANTITY:1 TABLET(S);OTHER FREQUENCY:TWICE WEEKLY;?
     Route: 067
     Dates: start: 20180521, end: 20180803

REACTIONS (3)
  - Dizziness [None]
  - Headache [None]
  - Visual impairment [None]

NARRATIVE: CASE EVENT DATE: 20180803
